FAERS Safety Report 11467635 (Version 1)
Quarter: 2015Q3

REPORT INFORMATION
  Report Type: Spontaneous
  Country: GB (occurrence: GB)
  Receive Date: 20150908
  Receipt Date: 20150908
  Transmission Date: 20151125
  Serious: Yes (Other)
  Sender: FDA-Public Use
  Company Number: GB-TEVA-590055ACC

PATIENT
  Age: 83 Year
  Sex: Female
  Weight: 51 kg

DRUGS (12)
  1. TRIMETHOPRIM. [Concomitant]
     Active Substance: TRIMETHOPRIM
     Dosage: 2 DOSAGE FORMS DAILY;
     Dates: start: 20150625, end: 20150702
  2. ALENDRONIC ACID [Concomitant]
     Active Substance: ALENDRONIC ACID
     Dosage: .1429 DOSAGE FORMS DAILY;
     Dates: start: 20141020
  3. COCODAMOL [Concomitant]
     Active Substance: ACETAMINOPHEN\CODEINE PHOSPHATE
     Indication: PAIN
     Dosage: 8 DOSAGE FORMS DAILY;
     Dates: start: 20141020
  4. OMEPRAZOLE. [Concomitant]
     Active Substance: OMEPRAZOLE
     Dosage: 1 DOSAGE FORMS DAILY;
     Dates: start: 20141020
  5. BACLOFEN. [Concomitant]
     Active Substance: BACLOFEN
     Dosage: 3 DOSAGE FORMS DAILY;
     Dates: start: 20150518, end: 20150603
  6. PREGABALIN. [Concomitant]
     Active Substance: PREGABALIN
     Dosage: 2 DOSAGE FORMS DAILY;
     Dates: start: 20150205, end: 20150518
  7. SENNA [Concomitant]
     Active Substance: SENNA LEAF\SENNOSIDES\SENNOSIDES A AND B
     Dosage: 1 OR 2 AT NIGHT WHEN NEEDED
     Dates: start: 20141020
  8. QUININE [Concomitant]
     Active Substance: QUININE
     Indication: MUSCLE SPASMS
     Dosage: 1 DOSAGE FORMS DAILY;
     Dates: start: 20141020
  9. VOLTAROL [Concomitant]
     Active Substance: DICLOFENAC SODIUM
     Dosage: TAKE ONE 3 TIMES/DAY AFTER FOOD WHEN REQUIRED
     Dates: start: 20141020
  10. ADCAL [Concomitant]
     Dosage: 4 DOSAGE FORMS DAILY;
     Dates: start: 20141020
  11. GABAPENTIN. [Suspect]
     Active Substance: GABAPENTIN
     Dates: start: 20150713
  12. AMITRIPTYLINE HYDROCHLORIDE. [Concomitant]
     Active Substance: AMITRIPTYLINE HYDROCHLORIDE
     Dosage: 1 DOSAGE FORMS DAILY; AT NIGHT
     Dates: start: 20141020

REACTIONS (1)
  - Hypertension [Recovered/Resolved]

NARRATIVE: CASE EVENT DATE: 20150714
